FAERS Safety Report 12729658 (Version 1)
Quarter: 2016Q3

REPORT INFORMATION
  Report Type: Report from Study
  Country: US (occurrence: US)
  Receive Date: 20160909
  Receipt Date: 20160909
  Transmission Date: 20161109
  Serious: Yes (Other)
  Sender: FDA-Public Use
  Company Number: US-GILEAD-2016-0231694

PATIENT
  Age: 64 Year
  Sex: Male

DRUGS (1)
  1. LEDIPASVIR/SOFOSBUVIR [Suspect]
     Active Substance: LEDIPASVIR\SOFOSBUVIR
     Indication: CHRONIC HEPATITIS C
     Dosage: 1 DF, UNK
     Route: 048

REACTIONS (10)
  - Amnesia [Unknown]
  - Dizziness [Unknown]
  - Pain [Unknown]
  - Back pain [Unknown]
  - Nervousness [Unknown]
  - Fatigue [Unknown]
  - Dyspnoea [Unknown]
  - Blindness [Unknown]
  - Prostatic disorder [Unknown]
  - Speech disorder [Unknown]
